FAERS Safety Report 18918164 (Version 5)
Quarter: 2021Q4

REPORT INFORMATION
  Report Type: Spontaneous
  Country: CA (occurrence: CA)
  Receive Date: 20210220
  Receipt Date: 20211025
  Transmission Date: 20220303
  Serious: Yes (Hospitalization, Other)
  Sender: FDA-Public Use
  Company Number: CA-AUROBINDO-AUR-APL-2021-006112

PATIENT
  Age: 40 Year
  Sex: Male

DRUGS (58)
  1. ARIPIPRAZOLE [Suspect]
     Active Substance: ARIPIPRAZOLE
     Indication: Schizophrenia
     Dosage: 30 MILLIGRAM, ONCE A DAY
     Route: 065
  2. ARIPIPRAZOLE [Suspect]
     Active Substance: ARIPIPRAZOLE
     Indication: Psychotherapy
  3. CLOZAPINE [Suspect]
     Active Substance: CLOZAPINE
     Indication: Schizophrenia
     Dosage: 350 MILLIGRAM, ONCE A DAY
     Route: 048
  4. CLOZAPINE [Suspect]
     Active Substance: CLOZAPINE
     Indication: Psychotic disorder
     Dosage: 350 MILLIGRAM
     Route: 048
  5. CITALOPRAM [Suspect]
     Active Substance: CITALOPRAM HYDROBROMIDE
     Indication: Schizophrenia
     Dosage: 80 MILLIGRAM, ONCE A DAY
     Route: 065
  6. CITALOPRAM [Suspect]
     Active Substance: CITALOPRAM HYDROBROMIDE
     Indication: Depression
     Dosage: 250 MILLIGRAM
     Route: 065
  7. CITALOPRAM [Suspect]
     Active Substance: CITALOPRAM HYDROBROMIDE
     Dosage: UNK
     Route: 065
  8. FLUOXETINE [Suspect]
     Active Substance: FLUOXETINE HYDROCHLORIDE
     Indication: Schizophrenia
     Dosage: 80 MILLIGRAM, ONCE A DAY
     Route: 065
  9. FLUOXETINE [Suspect]
     Active Substance: FLUOXETINE HYDROCHLORIDE
     Indication: Depression
  10. GABAPENTIN [Suspect]
     Active Substance: GABAPENTIN
     Indication: Schizophrenia
     Dosage: 600 MILLIGRAM, ONCE A DAY
     Route: 065
  11. GABAPENTIN [Suspect]
     Active Substance: GABAPENTIN
     Indication: Affective disorder
     Dosage: 1800 MILLIGRAM
     Route: 065
  12. OLANZAPINE [Suspect]
     Active Substance: OLANZAPINE
     Indication: Schizophrenia
     Dosage: 40 MILLIGRAM, ONCE A DAY
     Route: 065
  13. OLANZAPINE [Suspect]
     Active Substance: OLANZAPINE
     Indication: Psychotic disorder
     Dosage: 15 MILLIGRAM, ONCE A DAY
     Route: 065
  14. OLANZAPINE [Suspect]
     Active Substance: OLANZAPINE
     Dosage: 20 MILLIGRAM, ONCE A DAY
     Route: 065
  15. QUETIAPINE [Suspect]
     Active Substance: QUETIAPINE
     Indication: Schizophrenia
     Dosage: 600 MILLIGRAM, ONCE A DAY
     Route: 048
  16. QUETIAPINE [Suspect]
     Active Substance: QUETIAPINE
     Indication: Psychotic disorder
  17. ZIPRASIDONE [Suspect]
     Active Substance: ZIPRASIDONE
     Indication: Schizophrenia
     Dosage: 100 MILLIGRAM
     Route: 065
  18. AMISULPRIDE [Suspect]
     Active Substance: AMISULPRIDE
     Indication: Schizophrenia
     Dosage: 30 MILLIGRAM, ONCE A DAY
     Route: 065
  19. AMISULPRIDE [Suspect]
     Active Substance: AMISULPRIDE
     Indication: Psychotherapy
     Dosage: 1200 MILLIGRAM
     Route: 065
  20. ASENAPINE MALEATE [Suspect]
     Active Substance: ASENAPINE MALEATE
     Indication: Schizophrenia
     Dosage: UNK
     Route: 065
  21. CITALOPRAM HYDROBROMIDE [Suspect]
     Active Substance: CITALOPRAM HYDROBROMIDE
     Indication: Schizophrenia
     Dosage: 80 MILLIGRAM
     Route: 065
  22. CLOMIPRAMINE [Suspect]
     Active Substance: CLOMIPRAMINE
     Indication: Schizophrenia
     Dosage: 250 MILLIGRAM
     Route: 065
  23. FLUPENTIXOL [Suspect]
     Active Substance: FLUPENTIXOL
     Indication: Schizophrenia
     Dosage: 6 MILLIGRAM
     Route: 065
  24. FLUPENTIXOL [Suspect]
     Active Substance: FLUPENTIXOL
     Indication: Psychotic disorder
     Dosage: 60 MILLIGRAM, ONCE A DAY
     Route: 065
  25. HALOPERIDOL [Suspect]
     Active Substance: HALOPERIDOL
     Indication: Schizophrenia
     Dosage: 5 MILLIGRAM, ONCE A DAY
     Route: 065
  26. HALOPERIDOL [Suspect]
     Active Substance: HALOPERIDOL
     Indication: Psychotic disorder
     Dosage: 6 MILLIGRAM
     Route: 065
  27. LITHIUM [Suspect]
     Active Substance: LITHIUM
     Indication: Schizophrenia
     Dosage: 2400 MILLIGRAM, ONCE A DAY
     Route: 065
  28. LITHIUM [Suspect]
     Active Substance: LITHIUM
     Indication: Affective disorder
     Dosage: 1050 MILLIGRAM, ONCE A DAY
     Route: 065
  29. LITHIUM [Suspect]
     Active Substance: LITHIUM
     Dosage: 1800 MILLIGRAM, ONCE A DAY
     Route: 065
  30. LITHIUM CARBONATE [Suspect]
     Active Substance: LITHIUM CARBONATE
     Indication: Schizophrenia
     Dosage: 1800 MILLIGRAM
     Route: 065
  31. LITHIUM CARBONATE [Suspect]
     Active Substance: LITHIUM CARBONATE
     Indication: Affective disorder
     Dosage: 1050 MILLIGRAM
     Route: 065
  32. LITHIUM CARBONATE [Suspect]
     Active Substance: LITHIUM CARBONATE
     Dosage: 2400 MILLIGRAM, ONCE A DAY
     Route: 065
  33. LOXAPINE SUCCINATE [Suspect]
     Active Substance: LOXAPINE SUCCINATE
     Indication: Schizophrenia
     Dosage: 50 MILLIGRAM, ONCE A DAY
     Route: 065
  34. LOXAPINE SUCCINATE [Suspect]
     Active Substance: LOXAPINE SUCCINATE
     Indication: Psychotic disorder
     Dosage: 75 MILLIGRAM, ONCE A DAY
     Route: 065
  35. LOXAPINE SUCCINATE [Suspect]
     Active Substance: LOXAPINE SUCCINATE
     Dosage: 200 MILLIGRAM, ONCE A DAY
     Route: 065
  36. PERPHENAZINE [Suspect]
     Active Substance: PERPHENAZINE
     Indication: Schizophrenia
     Dosage: UNK
     Route: 065
  37. PERPHENAZINE [Suspect]
     Active Substance: PERPHENAZINE
     Indication: Psychotic disorder
     Dosage: 32 MILLIGRAM, ONCE A DAY
     Route: 065
  38. QUETIAPINE FUMARATE [Suspect]
     Active Substance: QUETIAPINE FUMARATE
     Indication: Schizophrenia
     Dosage: 600 MILLIGRAM
     Route: 048
  39. RISPERIDONE [Suspect]
     Active Substance: RISPERIDONE
     Indication: Schizophrenia
     Dosage: 3 MILLIGRAM, ONCE A DAY
     Route: 065
  40. RISPERIDONE [Suspect]
     Active Substance: RISPERIDONE
     Indication: Psychotic disorder
     Dosage: 8 MILLIGRAM, ONCE A DAY
     Route: 065
  41. RISPERIDONE [Suspect]
     Active Substance: RISPERIDONE
     Dosage: 4 MILLIGRAM, ONCE A DAY
     Route: 065
  42. SAPHRIS [Suspect]
     Active Substance: ASENAPINE MALEATE
     Indication: Schizophrenia
     Dosage: 100 MILLIGRAM
     Route: 048
  43. SAPHRIS [Suspect]
     Active Substance: ASENAPINE MALEATE
     Indication: Psychotic disorder
     Dosage: 600 MILLIGRAM
     Route: 065
  44. THIORIDAZINE [Suspect]
     Active Substance: THIORIDAZINE
     Indication: Schizophrenia
     Dosage: UNK
     Route: 048
  45. THIORIDAZINE [Suspect]
     Active Substance: THIORIDAZINE
     Indication: Psychotic disorder
  46. TRIFLUOPERAZINE [Suspect]
     Active Substance: TRIFLUOPERAZINE HYDROCHLORIDE
     Indication: Schizophrenia
     Dosage: UNK
     Route: 065
  47. TRIFLUOPERAZINE [Suspect]
     Active Substance: TRIFLUOPERAZINE HYDROCHLORIDE
     Indication: Psychotic disorder
     Dosage: 50 MILLIGRAM, ONCE A DAY
     Route: 065
  48. TRIFLUOPERAZINE [Suspect]
     Active Substance: TRIFLUOPERAZINE HYDROCHLORIDE
     Dosage: 5 MILLIGRAM
     Route: 065
  49. LOXAPINE SUCCINATE [Suspect]
     Active Substance: LOXAPINE SUCCINATE
     Indication: Schizophrenia
     Dosage: 200 MILLIGRAM
     Route: 065
  50. LOXAPINE SUCCINATE [Suspect]
     Active Substance: LOXAPINE SUCCINATE
     Dosage: 50 MILLIGRAM
     Route: 065
  51. LOXAPINE SUCCINATE [Suspect]
     Active Substance: LOXAPINE SUCCINATE
     Dosage: 75 MILLIGRAM
     Route: 065
  52. ZELDOX [Suspect]
     Active Substance: ZIPRASIDONE
     Indication: Schizophrenia
     Dosage: 100 MILLIGRAM
     Route: 048
  53. ZIPRASIDONE HYDROCHLORIDE [Suspect]
     Active Substance: ZIPRASIDONE HYDROCHLORIDE
     Indication: Schizophrenia
     Dosage: 100 MILLIGRAM, ONCE A DAY
     Route: 048
  54. ZIPRASIDONE HYDROCHLORIDE [Suspect]
     Active Substance: ZIPRASIDONE HYDROCHLORIDE
     Indication: Psychotic disorder
  55. ABILIFY [Concomitant]
     Active Substance: ARIPIPRAZOLE
     Indication: Product used for unknown indication
     Dosage: UNK
     Route: 065
  56. LOXAPINE [Concomitant]
     Active Substance: LOXAPINE
     Indication: Product used for unknown indication
     Dosage: UNK
     Route: 065
  57. VALPROATE SODIUM [Concomitant]
     Active Substance: VALPROATE SODIUM
     Indication: Product used for unknown indication
     Dosage: UNK
     Route: 065
  58. ZIPRASIDONE MESYLATE [Concomitant]
     Active Substance: ZIPRASIDONE MESYLATE
     Indication: Product used for unknown indication
     Dosage: UNK
     Route: 065

REACTIONS (21)
  - Akathisia [Unknown]
  - Antipsychotic drug level below therapeutic [Unknown]
  - Disinhibition [Unknown]
  - Dyslipidaemia [Unknown]
  - Euphoric mood [Unknown]
  - Hypertension [Unknown]
  - Increased appetite [Unknown]
  - Irritability [Unknown]
  - Leukopenia [Unknown]
  - Schizoaffective disorder [Unknown]
  - Suicide attempt [Unknown]
  - Obesity [Unknown]
  - Obsessive-compulsive disorder [Unknown]
  - Weight increased [Unknown]
  - Toxicity to various agents [Unknown]
  - Therapeutic product effect incomplete [Unknown]
  - Therapeutic product effect variable [Unknown]
  - Drug ineffective [Unknown]
  - Product use in unapproved indication [Unknown]
  - Off label use [Unknown]
  - Prescribed overdose [Unknown]
